FAERS Safety Report 10233087 (Version 2)
Quarter: 2014Q3

REPORT INFORMATION
  Report Type: Spontaneous
  Country: BR (occurrence: BR)
  Receive Date: 20140612
  Receipt Date: 20140730
  Transmission Date: 20150326
  Serious: Yes (Other)
  Sender: FDA-Public Use
  Company Number: BR-SA-2014SA076592

PATIENT
  Age: 65 Year
  Sex: Female

DRUGS (3)
  1. OMEGA 3 [Concomitant]
     Active Substance: OMEGA-3 FATTY ACIDS
     Dosage: 2 PER DAY AFTER LUNCH. ON THE DAY DID NOT USE AND WAS USING, TOMORROW WILL USE AGAIN.
     Route: 048
     Dates: start: 201404
  2. OSCAL [Concomitant]
     Active Substance: CALCIUM CARBONATE
     Indication: BONE DISORDER
     Dosage: 1 TAB AFTER COFFEE, ON THE DAY DID NOT USE AND WAS USING, TOMORROW WILL USE AGAIN)
     Route: 048
     Dates: start: 201404
  3. STILNOX [Suspect]
     Active Substance: ZOLPIDEM TARTRATE
     Indication: SLEEP DISORDER
     Dosage: ONE TABLET FOR 10 DAYS AT NIGHT
     Route: 048
     Dates: start: 20140605, end: 20140606

REACTIONS (12)
  - Discomfort [Recovered/Resolved]
  - Paraesthesia oral [Recovered/Resolved]
  - Paraesthesia [Recovered/Resolved]
  - Dizziness [Recovered/Resolved]
  - Throat tightness [Recovered/Resolved]
  - Nausea [Recovered/Resolved]
  - Headache [Recovered/Resolved]
  - Myocardial infarction [Recovered/Resolved]
  - Hypertension [Recovered/Resolved]
  - Laryngeal oedema [Recovered/Resolved]
  - Cough [Recovered/Resolved]
  - Malaise [Recovered/Resolved]

NARRATIVE: CASE EVENT DATE: 20140606
